FAERS Safety Report 9461495 (Version 1)
Quarter: 2013Q3

REPORT INFORMATION
  Report Type: Spontaneous
  Country: US (occurrence: US)
  Receive Date: 20130816
  Receipt Date: 20130816
  Transmission Date: 20140515
  Serious: Yes (Hospitalization)
  Sender: FDA-Public Use
  Company Number: PHEH2013US017165

PATIENT
  Sex: Male

DRUGS (10)
  1. EXELON PATCH [Suspect]
     Dosage: 13.3 MG, DAILY
     Route: 062
  2. EXELON PATCH [Suspect]
     Dosage: TWO EXELON PATCHES OF TWO LOW DOSES
     Route: 062
  3. PRADAXA [Concomitant]
  4. CARVEDILOL [Concomitant]
  5. METFORMIN [Concomitant]
  6. ABILIFY [Concomitant]
  7. FOLIC ACID [Concomitant]
  8. VITAMIN B12 [Concomitant]
  9. TESTOSTERONE [Concomitant]
  10. LASIX [Concomitant]

REACTIONS (2)
  - Cardiac failure congestive [Unknown]
  - Incorrect dose administered [Unknown]
